FAERS Safety Report 6093763-3 (Version None)
Quarter: 2009Q1

REPORT INFORMATION
  Report Type: 
  Country: None (occurrence: None)
  Receive Date: 20090226
  Receipt Date: 20090217
  Transmission Date: 20090719
  Serious: Yes (Hospitalization)
  Sender: FDA-Public Use
  Company Number: US-KINGPHARMUSA00001-K200900154

PATIENT
  Age: 80 Year
  Sex: Male

DRUGS (6)
  1. CORGARD [Suspect]
     Indication: HYPERTENSIVE HEART DISEASE
     Dosage: 20 MG, UNK
     Route: 048
     Dates: end: 20081023
  2. ARICEPT [Suspect]
     Indication: DEMENTIA ALZHEIMER'S TYPE
     Dosage: 5 MG, QD
     Route: 048
     Dates: start: 20060101, end: 20081023
  3. ASPIRIN [Concomitant]
  4. ENALAPRIL [Concomitant]
  5. NITRODERM [Concomitant]
  6. SEGURIL                            /00032601/ [Concomitant]

REACTIONS (3)
  - DRUG INTERACTION [None]
  - SINUS BRADYCARDIA [None]
  - SYNCOPE [None]
